FAERS Safety Report 6875087-7 (Version None)
Quarter: 2010Q3

REPORT INFORMATION
  Report Type: 
  Country: None (occurrence: None)
  Receive Date: 20100727
  Receipt Date: 20100713
  Transmission Date: 20110219
  Serious: Yes (Hospitalization)
  Sender: FDA-Public Use
  Company Number: PHHY2010US47098

PATIENT
  Sex: Female
  Weight: 87.089 kg

DRUGS (1)
  1. TEKTURNA [Suspect]
     Indication: HYPERTENSION
     Dosage: 150 MG QD
     Route: 048
     Dates: start: 20100602, end: 20100708

REACTIONS (1)
  - TOXIC EPIDERMAL NECROLYSIS [None]
